FAERS Safety Report 5636713-3 (Version None)
Quarter: 2008Q1

REPORT INFORMATION
  Report Type: 
  Country: None (occurrence: None)
  Receive Date: 20080225
  Receipt Date: 20080219
  Transmission Date: 20080703
  Serious: Yes (Other)
  Sender: FDA-Public Use
  Company Number: BR-ASTRAZENECA-2007UW15205

PATIENT
  Age: 27 Year
  Sex: Female
  Weight: 54 kg

DRUGS (1)
  1. ZOLADEX [Suspect]
     Indication: ENDOMETRIOSIS
     Route: 058
     Dates: start: 20070501, end: 20070817

REACTIONS (5)
  - AMENORRHOEA [None]
  - HEADACHE [None]
  - HOT FLUSH [None]
  - HYPERHIDROSIS [None]
  - WEIGHT DECREASED [None]
